FAERS Safety Report 4991331-5 (Version None)
Quarter: 2006Q2

REPORT INFORMATION
  Report Type: 
  Country: None (occurrence: None)
  Receive Date: 20060428
  Receipt Date: 20060419
  Transmission Date: 20061013
  Serious: Yes (Death, Other)
  Sender: FDA-Public Use
  Company Number: 2006053619

PATIENT
  Sex: Male

DRUGS (1)
  1. CELEBREX [Suspect]
     Indication: ILL-DEFINED DISORDER

REACTIONS (3)
  - CARDIAC ARREST [None]
  - CEREBROVASCULAR ACCIDENT [None]
  - GASTROINTESTINAL HAEMORRHAGE [None]
